FAERS Safety Report 5285362-8 (Version None)
Quarter: 2007Q2

REPORT INFORMATION
  Report Type: 
  Country: None (occurrence: None)
  Receive Date: 20070403
  Receipt Date: 20070327
  Transmission Date: 20071010
  Serious: Yes (Other)
  Sender: FDA-Public Use
  Company Number: FR-SHR-FR-2007-010603

PATIENT
  Age: 41 Year
  Sex: Female

DRUGS (1)
  1. MIRENA [Suspect]
     Dosage: 20 A?G/DAY, CONT
     Route: 015
     Dates: start: 20060101

REACTIONS (1)
  - BREAST CANCER FEMALE [None]
